FAERS Safety Report 6871130-X (Version None)
Quarter: 2010Q3

REPORT INFORMATION
  Report Type: 
  Country: None (occurrence: None)
  Receive Date: 20100723
  Receipt Date: 20100713
  Transmission Date: 20110219
  Serious: Yes (Hospitalization, Other)
  Sender: FDA-Public Use
  Company Number: US-PFIZER INC-2010038920

PATIENT
  Sex: Female

DRUGS (14)
  1. CHANTIX [Suspect]
     Indication: SMOKING CESSATION THERAPY
     Dosage: 0.5 MG, UNK
     Route: 048
     Dates: start: 20080128, end: 20080401
  2. VICODIN [Concomitant]
     Indication: ARTHRALGIA
     Dosage: UNK
     Dates: start: 20040101, end: 20100101
  3. VICODIN [Concomitant]
     Indication: PELVIC PAIN
  4. VICODIN [Concomitant]
     Indication: MUSCULOSKELETAL PAIN
  5. VICODIN [Concomitant]
     Indication: MIGRAINE
  6. VICODIN [Concomitant]
     Indication: TOOTHACHE
  7. DARVOCET [Concomitant]
     Indication: ARTHRALGIA
     Dosage: UNK
     Dates: start: 20040101, end: 20100101
  8. DARVOCET [Concomitant]
     Indication: PELVIC PAIN
  9. DARVOCET [Concomitant]
     Indication: MUSCULOSKELETAL PAIN
  10. DARVOCET [Concomitant]
     Indication: MIGRAINE
  11. DARVOCET [Concomitant]
     Indication: TOOTHACHE
  12. ESTRATEST H.S. [Concomitant]
     Indication: HORMONE REPLACEMENT THERAPY
     Dosage: UNK
     Dates: start: 20060101, end: 20100101
  13. NEXIUM [Concomitant]
     Indication: GASTROOESOPHAGEAL REFLUX DISEASE
     Dosage: UNK
     Dates: start: 20040101
  14. PROTONIX [Concomitant]
     Indication: GASTROOESOPHAGEAL REFLUX DISEASE
     Dosage: UNK
     Dates: start: 20040101, end: 20090101

REACTIONS (8)
  - ABNORMAL BEHAVIOUR [None]
  - AGGRESSION [None]
  - AGITATION [None]
  - ANXIETY [None]
  - BIPOLAR DISORDER [None]
  - DEPRESSION [None]
  - OVERDOSE [None]
  - SUICIDE ATTEMPT [None]
